FAERS Safety Report 25031818 (Version 1)
Quarter: 2025Q1

REPORT INFORMATION
  Report Type: Report from Study
  Country: TZ (occurrence: TZ)
  Receive Date: 20250303
  Receipt Date: 20250303
  Transmission Date: 20250408
  Serious: Yes (Life-Threatening, Other)
  Sender: NOVARTIS
  Company Number: TZ-002147023-NVSC2024TZ078319

PATIENT
  Age: 43 Year
  Sex: Female

DRUGS (6)
  1. TYKERB [Suspect]
     Active Substance: LAPATINIB DITOSYLATE
     Indication: Breast cancer metastatic
     Dosage: 1000 MG, QD
     Route: 048
     Dates: start: 20210922
  2. TYKERB [Suspect]
     Active Substance: LAPATINIB DITOSYLATE
     Indication: Hormone receptor negative HER2 positive breast cancer
     Dosage: 1000 MG/KG, QD
     Route: 048
     Dates: start: 2022, end: 2023
  3. TYKERB [Suspect]
     Active Substance: LAPATINIB DITOSYLATE
     Dosage: 1000 MG, QD
     Route: 048
     Dates: end: 202308
  4. CAPECITABINE [Concomitant]
     Active Substance: CAPECITABINE
     Indication: Hormone receptor positive HER2 negative breast cancer
     Route: 065
  5. TRASTUZUMAB [Concomitant]
     Active Substance: TRASTUZUMAB
     Indication: Hormone receptor positive HER2 negative breast cancer
     Route: 065
     Dates: end: 2021
  6. TRASTUZUMAB [Concomitant]
     Active Substance: TRASTUZUMAB
     Route: 065

REACTIONS (5)
  - Breast cancer metastatic [Not Recovered/Not Resolved]
  - Malignant neoplasm progression [Not Recovered/Not Resolved]
  - Metastases to central nervous system [Not Recovered/Not Resolved]
  - Seizure [Unknown]
  - Brain oedema [Unknown]

NARRATIVE: CASE EVENT DATE: 20230501
